FAERS Safety Report 22264498 (Version 1)
Quarter: 2023Q2

REPORT INFORMATION
  Report Type: Spontaneous
  Country: US (occurrence: None)
  Receive Date: 20230427
  Receipt Date: 20230427
  Transmission Date: 20230721
  Serious: Yes (Death)
  Sender: FDA-Public Use
  Company Number: None

PATIENT
  Age: 76 Year
  Sex: Female
  Weight: 65.25 kg

DRUGS (1)
  1. KEYTRUDA [Suspect]
     Active Substance: PEMBROLIZUMAB
     Indication: Metastatic malignant melanoma
     Route: 042
     Dates: start: 20230310

REACTIONS (14)
  - Immune system disorder [None]
  - Autoimmune disorder [None]
  - Blood sodium decreased [None]
  - Hepatic enzyme increased [None]
  - Haemoglobin decreased [None]
  - Blood pressure fluctuation [None]
  - Urinary retention [None]
  - Gastrointestinal motility disorder [None]
  - Muscle disorder [None]
  - Speech disorder [None]
  - Psychomotor skills impaired [None]
  - Encephalopathy [None]
  - Myasthenia gravis [None]
  - Gastrointestinal necrosis [None]

NARRATIVE: CASE EVENT DATE: 20230310
